FAERS Safety Report 5266721-6 (Version None)
Quarter: 2007Q1

REPORT INFORMATION
  Report Type: 
  Country: None (occurrence: None)
  Receive Date: 20070312
  Receipt Date: 20070223
  Transmission Date: 20070707
  Serious: Yes (Life-Threatening, Hospitalization, Other)
  Sender: FDA-Public Use
  Company Number: DSA_29469_2007

PATIENT
  Age: 40 Year
  Sex: Male

DRUGS (8)
  1. NIFEDIPINE [Suspect]
     Indication: HYPERTENSION
     Dosage: DF UNK UNK
  2. NIFEDIPINE [Suspect]
     Indication: HYPERTENSION
     Dosage: 10 MG BID UNK
  3. PYRIDOSTIGMINE BROMIDE [Concomitant]
  4. PYRIDOSTIGMINE BROMIDE [Concomitant]
  5. PYRIDOSTIGMINE BROMIDE [Concomitant]
  6. NEOSTIGMINE [Concomitant]
  7. NEOSTIGMINE [Concomitant]
  8. NEOSTIGMINE [Concomitant]

REACTIONS (14)
  - CONDITION AGGRAVATED [None]
  - CRANIAL NERVE DISORDER [None]
  - DIPLOPIA [None]
  - DYSARTHRIA [None]
  - DYSPHAGIA [None]
  - DYSPNOEA [None]
  - EYELID PTOSIS [None]
  - FORCED EXPIRATORY VOLUME DECREASED [None]
  - HYPERTENSION [None]
  - JOINT RANGE OF MOTION DECREASED [None]
  - MUSCULAR WEAKNESS [None]
  - RESPIRATORY DISORDER [None]
  - RESPIRATORY RATE INCREASED [None]
  - TACHYPNOEA [None]
